FAERS Safety Report 8489119-6 (Version None)
Quarter: 2012Q3

REPORT INFORMATION
  Report Type: 
  Country: None (occurrence: None)
  Receive Date: 20120705
  Receipt Date: 20120629
  Transmission Date: 20120928
  Serious: Yes (Hospitalization)
  Sender: FDA-Public Use
  Company Number: PHHY2012AU038826

PATIENT
  Sex: Female

DRUGS (1)
  1. CLOZARIL [Suspect]
     Dosage: 300 MG, UNK
     Route: 048
     Dates: start: 20020125

REACTIONS (4)
  - HALLUCINATION [None]
  - SCHIZOPHRENIA [None]
  - PARANOIA [None]
  - AGGRESSION [None]
